FAERS Safety Report 7648763-6 (Version None)
Quarter: 2011Q3

REPORT INFORMATION
  Report Type: 
  Country: None (occurrence: None)
  Receive Date: 20110801
  Receipt Date: 20110725
  Transmission Date: 20111222
  Serious: Yes (Other)
  Sender: FDA-Public Use
  Company Number: PHHY2011US61091

PATIENT
  Sex: Male

DRUGS (1)
  1. FANAPT [Suspect]
     Indication: BIPOLAR DISORDER
     Dosage: 6 MG, BID
     Route: 048
     Dates: start: 20110428, end: 20110531

REACTIONS (4)
  - DIZZINESS [None]
  - HYPOTENSION [None]
  - ORTHOSTATIC HYPOTENSION [None]
  - LOSS OF CONSCIOUSNESS [None]
